FAERS Safety Report 8966913 (Version 1)
Quarter: 2012Q4

REPORT INFORMATION
  Report Type: 
  Country: GB (occurrence: GB)
  Receive Date: 20121214
  Receipt Date: 20121214
  Transmission Date: 20130627
  Serious: Yes (Life-Threatening, Hospitalization, Disabling)
  Sender: FDA-Public Use
  Company Number: GB-BAXTER-2012BAX026504

PATIENT
  Age: 89 Year
  Sex: Female
  Weight: 48 kg

DRUGS (5)
  1. SODIUM CHLORIDE 0.9% W/V INTRAVENOUS INFUSION BP, POLYOLEFIN/POLYAMIDE [Suspect]
     Indication: ULCER
     Dates: start: 201202, end: 201206
  2. DIGOXIN [Concomitant]
     Indication: ATRIAL FIBRILLATION
     Route: 065
     Dates: start: 2001
  3. HUMULIN [Concomitant]
     Indication: DIABETES MELLITUS
     Route: 058
     Dates: start: 201206
  4. MIXTARD [Concomitant]
     Indication: DIABETES MELLITUS
     Route: 058
     Dates: start: 2004, end: 201207
  5. RANITIDINE [Concomitant]
     Indication: DRUG USE FOR UNKNOWN INDICATION
     Route: 058

REACTIONS (1)
  - Skin ulcer [Recovered/Resolved]
